FAERS Safety Report 24876003 (Version 1)
Quarter: 2025Q1

REPORT INFORMATION
  Report Type: Report from Study
  Country: CA (occurrence: CA)
  Receive Date: 20250123
  Receipt Date: 20250123
  Transmission Date: 20250409
  Serious: Yes (Hospitalization)
  Sender: ABBVIE
  Company Number: CA-ABBVIE-6089945

PATIENT
  Age: 36 Year
  Sex: Male

DRUGS (1)
  1. RINVOQ [Suspect]
     Active Substance: UPADACITINIB
     Indication: Ankylosing spondylitis
     Dosage: 30MG
     Route: 048
     Dates: start: 20220715

REACTIONS (3)
  - Respiratory syncytial virus infection [Recovering/Resolving]
  - Oropharyngeal pain [Unknown]
  - Asthenia [Unknown]

NARRATIVE: CASE EVENT DATE: 20250101
